FAERS Safety Report 9250699 (Version 1)
Quarter: 2013Q2

REPORT INFORMATION
  Report Type: Spontaneous
  Country: US (occurrence: US)
  Receive Date: 20130424
  Receipt Date: 20130424
  Transmission Date: 20140414
  Serious: Yes (Other)
  Sender: FDA-Public Use
  Company Number: US-SANOFI-AVENTIS-2013SA041150

PATIENT
  Age: 49 Year
  Sex: Female

DRUGS (2)
  1. LANTUS [Suspect]
     Indication: TYPE 2 DIABETES MELLITUS
     Dosage: DOSE:35 UNIT(S)
     Route: 051
     Dates: start: 2001
  2. HUMALOG [Suspect]

REACTIONS (6)
  - Glaucoma [Unknown]
  - Hypoglycaemia [Unknown]
  - Arthralgia [Unknown]
  - Joint swelling [Unknown]
  - Blood glucose increased [Unknown]
  - Drug ineffective [Unknown]
